FAERS Safety Report 19495949 (Version 1)
Quarter: 2021Q3

REPORT INFORMATION
  Report Type: Spontaneous
  Country: GR (occurrence: GR)
  Receive Date: 20210706
  Receipt Date: 20210706
  Transmission Date: 20211014
  Serious: Yes (Other)
  Sender: FDA-Public Use
  Company Number: GR-TEVA-2021-GR-1930122

PATIENT
  Age: 58 Year
  Sex: Female
  Weight: 45 kg

DRUGS (3)
  1. ROSUVASTATIN. [Suspect]
     Active Substance: ROSUVASTATIN
     Indication: HYPERLIPIDAEMIA
     Dosage: 1X1, 40 MG
     Route: 065
     Dates: start: 20201201, end: 20210331
  2. ATORVASTATIN [Concomitant]
     Active Substance: ATORVASTATIN
     Dates: start: 2017, end: 20201201
  3. LOPRESOR 100MG/TAB F.C.TAB [Concomitant]
     Indication: CORONARY ARTERY DISEASE
     Dosage: 1/4 X 1, 100 MG
     Dates: start: 20160601

REACTIONS (1)
  - Albumin urine present [Not Recovered/Not Resolved]

NARRATIVE: CASE EVENT DATE: 20210401
